FAERS Safety Report 8565048-4 (Version None)
Quarter: 2012Q3

REPORT INFORMATION
  Report Type: 
  Country: None (occurrence: None)
  Receive Date: 20120723
  Receipt Date: 20120715
  Transmission Date: 20120928
  Serious: Yes (Death)
  Sender: FDA-Public Use
  Company Number: DSA_57657_2012

PATIENT
  Sex: Male

DRUGS (7)
  1. MULTI-VITAMINS [Concomitant]
  2. XENAZINE [Suspect]
     Indication: HUNTINGTON'S DISEASE
     Dosage: 1 1/2 TABLETS THREE TIMES DAILY ORAL
     Route: 048
     Dates: start: 20090601
  3. FISH OIL [Concomitant]
  4. VITAMIN D [Concomitant]
  5. TRAZODONE HYDROCHLORIDE [Concomitant]
  6. CITALOPRAM HYDROBROMIDE [Concomitant]
  7. HYDROCOD-GF [Concomitant]

REACTIONS (19)
  - HEAD INJURY [None]
  - MUSCLE RIGIDITY [None]
  - ANXIETY [None]
  - GAIT DISTURBANCE [None]
  - INSOMNIA [None]
  - CONDITION AGGRAVATED [None]
  - COGNITIVE DISORDER [None]
  - BRADYKINESIA [None]
  - DYSARTHRIA [None]
  - ACTIVITIES OF DAILY LIVING IMPAIRED [None]
  - CHOREA [None]
  - SCOLIOSIS [None]
  - CONSTIPATION [None]
  - MEMORY IMPAIRMENT [None]
  - SUBDURAL HAEMATOMA [None]
  - FALL [None]
  - INTERVERTEBRAL DISC COMPRESSION [None]
  - DYSTONIA [None]
  - SACCADIC EYE MOVEMENT [None]
